FAERS Safety Report 6769706-3 (Version None)
Quarter: 2010Q2

REPORT INFORMATION
  Report Type: 
  Country: None (occurrence: None)
  Receive Date: 20100615
  Receipt Date: 20100609
  Transmission Date: 20101027
  Serious: Yes (Hospitalization)
  Sender: FDA-Public Use
  Company Number: DE-ROCHE-706681

PATIENT
  Sex: Female
  Weight: 64 kg

DRUGS (6)
  1. BEVACIZUMAB [Suspect]
     Indication: BREAST CANCER
     Dosage: DOSE AND ROUTE: AS PER PROTOCOL, DAY: 1, THREE WEEKS CYCLE.
     Route: 042
     Dates: start: 20100326
  2. CAPECITABINE [Suspect]
     Indication: BREAST CANCER
     Dosage: ROUTE: AS PER PROTOCOL, DAYS: 1-14, THREE WEEKS CYCLE. DOSE REDUCED.
     Route: 048
     Dates: start: 20100325
  3. RESPERIDON [Concomitant]
  4. ASPIRIN [Concomitant]
     Dates: start: 20070201
  5. RAMIPRIL [Concomitant]
  6. IBUPROFEN [Concomitant]

REACTIONS (2)
  - ABDOMINAL PAIN [None]
  - INFECTION [None]
